FAERS Safety Report 5152467-1 (Version None)
Quarter: 2006Q4

REPORT INFORMATION
  Report Type: 
  Country: None (occurrence: None)
  Receive Date: 20061116
  Receipt Date: 20060502
  Transmission Date: 20070319
  Serious: Yes (Hospitalization)
  Sender: FDA-Public Use
  Company Number: US-ELI_LILLY_AND_COMPANY-US200608002626

PATIENT
  Age: 28 Year
  Sex: Male
  Weight: 137.87 kg

DRUGS (3)
  1. NEURONTIN [Concomitant]
     Dates: start: 19990101
  2. PAROXETINE HCL [Concomitant]
     Dates: start: 19990101, end: 20030101
  3. ZYPREXA [Suspect]
     Indication: BIPOLAR DISORDER
     Dosage: 10 MG, UNK
     Dates: start: 19990101, end: 20030101

REACTIONS (11)
  - BILIARY TRACT DISORDER [None]
  - CHOLECYSTECTOMY [None]
  - HYPERGLYCAEMIA [None]
  - HYPERPHAGIA [None]
  - HYPOGLYCAEMIA [None]
  - OBESITY [None]
  - POLYDIPSIA [None]
  - POLYURIA [None]
  - VISION BLURRED [None]
  - WEIGHT DECREASED [None]
  - WEIGHT INCREASED [None]
